FAERS Safety Report 4344826-1 (Version None)
Quarter: 2004Q2

REPORT INFORMATION
  Report Type: 
  Country: None (occurrence: None)
  Receive Date: 20040423
  Receipt Date: 20031106
  Transmission Date: 20050107
  Serious: Yes (Hospitalization, Disabling, Other)
  Sender: FDA-Public Use
  Company Number: PHHO2003JP14356

PATIENT
  Age: 3 Year
  Sex: Male
  Weight: 12 kg

DRUGS (3)
  1. SIMULECT / CHI 621A / SDZ CHI 621 [Suspect]
     Indication: RENAL TRANSPLANT
     Dosage: 10 MG, ONCE/SINGLE
     Route: 042
     Dates: start: 20031104, end: 20031104
  2. SIMULECT / CHI 621A / SDZ CHI 621 [Suspect]
     Dosage: 10 MG, ONCE/SINGLE
     Route: 042
     Dates: start: 20031108, end: 20031108
  3. SANDIMMUNE [Suspect]
     Indication: RENAL TRANSPLANT
     Dosage: 55 MG/DAY
     Route: 042
     Dates: start: 20031105, end: 20031108

REACTIONS (13)
  - BINOCULAR EYE MOVEMENT DISORDER [None]
  - BRAIN OEDEMA [None]
  - CARDIAC FAILURE [None]
  - CARDIOMEGALY [None]
  - CONVULSION [None]
  - DEPRESSED LEVEL OF CONSCIOUSNESS [None]
  - EXTRAVASATION [None]
  - HYPERTENSION [None]
  - HYPERTENSIVE ENCEPHALOPATHY [None]
  - OEDEMA [None]
  - PULMONARY CONGESTION [None]
  - SINUS BRADYCARDIA [None]
  - URINE OUTPUT DECREASED [None]
